FAERS Safety Report 18297725 (Version 2)
Quarter: 2020Q4

REPORT INFORMATION
  Report Type: Spontaneous
  Country: DK (occurrence: DK)
  Receive Date: 20200922
  Receipt Date: 20201002
  Transmission Date: 20210113
  Serious: Yes (Other)
  Sender: FDA-Public Use
  Company Number: DK-MYLANLABS-2020M1079601

PATIENT
  Age: 80 Year
  Sex: Male

DRUGS (7)
  1. CLOPIDOGREL BISULFATE. [Suspect]
     Active Substance: CLOPIDOGREL BISULFATE
     Indication: MIGRAINE
     Dosage: 75 MILLIGRAM, QD
     Route: 065
     Dates: start: 201806, end: 201906
  2. ELIQUIS [Concomitant]
     Active Substance: APIXABAN
     Indication: PRODUCT USED FOR UNKNOWN INDICATION
     Dosage: 2.5 MILLIGRAM, BID (2.5 MG, BID)
     Dates: start: 201806
  3. CLOPIDOGREL [Suspect]
     Active Substance: CLOPIDOGREL BISULFATE
     Dosage: 75 MILLIGRAM, QD (75 MG, QD)
     Dates: start: 201910
  4. CLOPIDOGREL BISULFATE. [Suspect]
     Active Substance: CLOPIDOGREL BISULFATE
     Dosage: 75 MILLIGRAM, QD
     Route: 065
     Dates: start: 201910
  5. CLOPIDOGREL [Suspect]
     Active Substance: CLOPIDOGREL BISULFATE
     Indication: MIGRAINE
     Dosage: 75 MILLIGRAM, QD (75 MG, QD)
     Route: 065
     Dates: start: 201806, end: 201906
  6. HJERTEMAGNYL                       /00002701/ [Concomitant]
     Active Substance: ASPIRIN
     Indication: PRODUCT USED FOR UNKNOWN INDICATION
     Dosage: 1 DOSAGE FORM, QD
     Dates: start: 201806
  7. ELIQUIS [Concomitant]
     Active Substance: APIXABAN
     Dosage: 5 MILLIGRAM, BID (5 MG, BID)
     Dates: start: 201906

REACTIONS (4)
  - Intentional product misuse [Unknown]
  - Arrhythmia [Unknown]
  - Therapeutic response unexpected [Unknown]
  - Off label use [Unknown]
